FAERS Safety Report 17523505 (Version 5)
Quarter: 2020Q2

REPORT INFORMATION
  Report Type: Report from Study
  Country: None (occurrence: CH)
  Receive Date: 20200311
  Receipt Date: 20200409
  Transmission Date: 20200713
  Serious: Yes (Death)
  Sender: FDA-Public Use
  Company Number: CH-ABBVIE-20K-151-3309303-00

PATIENT
  Sex: Male

DRUGS (3)
  1. DUODOPA [Suspect]
     Active Substance: CARBIDOPA\LEVODOPA
     Dosage: MD: 5.0 ML/H, CDR: 3.9 ML/H, CNR .0 ML/H, ED: 2.0 ML, 1 CASSETTE PER 24 H?24 H THERAPY
     Route: 050
     Dates: start: 20190430
  2. DUODOPA [Suspect]
     Active Substance: CARBIDOPA\LEVODOPA
     Indication: PARKINSON^S DISEASE
     Dosage: 20 MG/ML 5 MG/ML
     Route: 050
     Dates: start: 20190401, end: 20190415
  3. DUODOPA [Suspect]
     Active Substance: CARBIDOPA\LEVODOPA
     Dosage: MD: 5.0 ML/H, CDR: 3.9 ML/H, CNR 2.7 ML/H, EXTRA DOSE: 2.0 ML?24 H THERAPY
     Route: 050
     Dates: start: 20190415, end: 20190430

REACTIONS (7)
  - Device alarm issue [Recovered/Resolved]
  - Asthenia [Fatal]
  - Cachexia [Fatal]
  - Post procedural complication [Fatal]
  - Device use error [Recovered/Resolved]
  - Surgery [Fatal]
  - Fall [Unknown]
